FAERS Safety Report 7055537-6 (Version None)
Quarter: 2010Q4

REPORT INFORMATION
  Report Type: 
  Country: None (occurrence: None)
  Receive Date: 20101021
  Receipt Date: 20101008
  Transmission Date: 20110411
  Serious: Yes (Other)
  Sender: FDA-Public Use
  Company Number: DE-CELGENEUS-062-21880-10020783

PATIENT
  Age: 76 Year
  Sex: Male

DRUGS (1)
  1. REVLIMID [Suspect]
     Route: 048
     Dates: start: 20091208, end: 20100125

REACTIONS (5)
  - ANAEMIA [None]
  - DYSPNOEA [None]
  - FATIGUE [None]
  - PATHOLOGICAL FRACTURE [None]
  - PRURITUS GENERALISED [None]
